FAERS Safety Report 20545291 (Version 7)
Quarter: 2022Q4

REPORT INFORMATION
  Report Type: Spontaneous
  Country: US (occurrence: US)
  Receive Date: 20220303
  Receipt Date: 20221022
  Transmission Date: 20230112
  Serious: Yes (Hospitalization, Other)
  Sender: FDA-Public Use
  Company Number: US-Accord-255876

PATIENT
  Age: 56 Year
  Sex: Female
  Weight: 83.20 kg

DRUGS (25)
  1. GEMCITABINE [Suspect]
     Active Substance: GEMCITABINE
     Indication: Diffuse large B-cell lymphoma stage IV
     Dosage: 1Q2W
     Dates: start: 20210830, end: 20211116
  2. OXALIPLATIN [Suspect]
     Active Substance: OXALIPLATIN
     Indication: Diffuse large B-cell lymphoma stage IV
     Dosage: 1Q2W
     Dates: start: 20210830, end: 20211229
  3. EPCORITAMAB [Suspect]
     Active Substance: EPCORITAMAB
     Indication: Diffuse large B-cell lymphoma stage IV
     Dosage: PRIMING DOSE: 0.16 MILLIGRAM, SINGLE;
     Dates: start: 20210830, end: 20210830
  4. ZYLOPRIM [Concomitant]
     Active Substance: ALLOPURINOL
     Dates: start: 20211026
  5. LIPITOR [Concomitant]
     Active Substance: ATORVASTATIN CALCIUM
     Dates: start: 20201103
  6. BIOTIN [Concomitant]
     Active Substance: BIOTIN
     Dates: start: 20130115
  7. BUPROPION [Concomitant]
     Active Substance: BUPROPION
     Dates: start: 20100713
  8. VITAMIN D3 [Concomitant]
     Active Substance: CHOLECALCIFEROL
     Dates: start: 20201103
  9. NEURONTIN [Concomitant]
     Active Substance: GABAPENTIN
     Dates: start: 20210913
  10. SYNTHROID [Concomitant]
     Active Substance: LEVOTHYROXINE SODIUM
     Dates: start: 20201103
  11. EMLA [Concomitant]
     Active Substance: LIDOCAINE\PRILOCAINE
     Dates: start: 20210330
  12. LIDODERM [Concomitant]
     Active Substance: LIDOCAINE
     Dates: start: 20210913
  13. ATIVAN [Concomitant]
     Active Substance: LORAZEPAM
     Dates: start: 20121227
  14. HYZAAR [Concomitant]
     Active Substance: HYDROCHLOROTHIAZIDE\LOSARTAN POTASSIUM
     Dates: start: 20180827
  15. MAGNESIUM [Concomitant]
     Active Substance: MAGNESIUM
     Dates: start: 20210921
  16. SINGULAIR [Concomitant]
     Active Substance: MONTELUKAST SODIUM
     Dates: start: 20190603
  17. PRILOSEC [Concomitant]
     Active Substance: OMEPRAZOLE MAGNESIUM
     Dates: start: 20190618
  18. ZOFRAN [Concomitant]
     Active Substance: ONDANSETRON HYDROCHLORIDE
     Dates: start: 20210329
  19. POTASSIUM CHLORIDE [Concomitant]
     Active Substance: POTASSIUM CHLORIDE
     Dates: start: 20210921
  20. COMPAZINE [Concomitant]
     Active Substance: PROCHLORPERAZINE MALEATE
     Dates: start: 20210329
  21. SODIUM CHLORIDE [Concomitant]
     Active Substance: SODIUM CHLORIDE
     Dates: start: 20150605
  22. GEMCITABINE [Suspect]
     Active Substance: GEMCITABINE
     Indication: Diffuse large B-cell lymphoma stage IV
     Dosage: 1Q2W
     Route: 042
     Dates: start: 20211209, end: 20211229
  23. EPCORITAMAB [Suspect]
     Active Substance: EPCORITAMAB
     Indication: Diffuse large B-cell lymphoma stage IV
     Dosage: INTERMEDIATE DOSE: 0.8, SINGLE;
     Route: 058
     Dates: start: 20210908, end: 20210908
  24. EPCORITAMAB [Suspect]
     Active Substance: EPCORITAMAB
     Indication: Diffuse large B-cell lymphoma stage IV
     Dosage: FULL DOSE: 48 MILLIGRAM, WEEKLY;
     Route: 058
     Dates: start: 20210914, end: 20211123
  25. EPCORITAMAB [Suspect]
     Active Substance: EPCORITAMAB
     Indication: Diffuse large B-cell lymphoma stage IV
     Dosage: FULL DOSE: 48 MILLIGRAM, 1Q2W
     Route: 058
     Dates: start: 20211209, end: 20220209

REACTIONS (2)
  - Pneumonia [Recovered/Resolved]
  - Off label use [Unknown]

NARRATIVE: CASE EVENT DATE: 20220214
